FAERS Safety Report 8509412-8 (Version None)
Quarter: 2012Q3

REPORT INFORMATION
  Report Type: 
  Country: None (occurrence: None)
  Receive Date: 20120713
  Receipt Date: 20120705
  Transmission Date: 20120928
  Serious: Yes (Other)
  Sender: FDA-Public Use
  Company Number: US-CELGENEUS-163-21880-12052475

PATIENT
  Sex: Male

DRUGS (3)
  1. DECITABINE [Suspect]
  2. REVLIMID [Suspect]
     Indication: MYELODYSPLASTIC SYNDROME
     Dosage: 10 MILLIGRAM
     Route: 048
     Dates: start: 20120403
  3. DECITABINE [Suspect]
     Dosage: 32 MILLIGRAM
     Route: 041
     Dates: start: 20120403

REACTIONS (1)
  - GINGIVAL BLEEDING [None]
